FAERS Safety Report 8883057 (Version 1)
Quarter: 2012Q4

REPORT INFORMATION
  Report Type: 
  Country: NL (occurrence: NL)
  Receive Date: 20121102
  Receipt Date: 20121102
  Transmission Date: 20130627
  Serious: Yes (Other)
  Sender: FDA-Public Use
  Company Number: PHHY2012NL099320

PATIENT
  Sex: Male

DRUGS (6)
  1. ZOMETA [Suspect]
     Indication: RENAL CELL CARCINOMA
     Dosage: 4 mg, every 28 days
     Route: 042
     Dates: start: 20101122
  2. ZOMETA [Suspect]
     Dosage: 4 mg, every 28 days
     Route: 042
     Dates: start: 20121002
  3. ZOMETA [Suspect]
     Dosage: 4 mg, every 28 days
     Route: 042
     Dates: start: 20121031
  4. DEXAMETHASONE [Concomitant]
  5. MORPHINE [Concomitant]
  6. MORPHINE PATCH [Concomitant]
     Dosage: 25 ug, UNK

REACTIONS (8)
  - Apnoea [Not Recovered/Not Resolved]
  - Aggression [Not Recovered/Not Resolved]
  - Chest discomfort [Not Recovered/Not Resolved]
  - Contusion [Not Recovered/Not Resolved]
  - Memory impairment [Not Recovered/Not Resolved]
  - Gait disturbance [Not Recovered/Not Resolved]
  - Insomnia [Not Recovered/Not Resolved]
  - Back pain [Not Recovered/Not Resolved]
